FAERS Safety Report 9271112 (Version 15)
Quarter: 2015Q4

REPORT INFORMATION
  Report Type: Report from Study
  Country: CA (occurrence: CA)
  Receive Date: 20130506
  Receipt Date: 20151109
  Transmission Date: 20160305
  Serious: Yes (Other)
  Sender: FDA-Public Use
  Company Number: PHHY2013CA019185

PATIENT
  Age: 45 Year
  Sex: Male

DRUGS (2)
  1. TASIGNA [Suspect]
     Active Substance: NILOTINIB
     Indication: CHRONIC MYELOID LEUKAEMIA
     Dosage: 300 MG, BID
     Route: 048
     Dates: start: 201107
  2. SYNTHROID [Concomitant]
     Active Substance: LEVOTHYROXINE SODIUM
     Indication: HYPOTHYROIDISM
     Route: 065

REACTIONS (14)
  - Panic attack [Unknown]
  - Pain in extremity [Unknown]
  - Headache [Unknown]
  - Hypoaesthesia [Not Recovered/Not Resolved]
  - Gait disturbance [Unknown]
  - Myalgia [Not Recovered/Not Resolved]
  - Dizziness [Recovering/Resolving]
  - Muscle spasms [Not Recovered/Not Resolved]
  - Trismus [Unknown]
  - Anxiety [Unknown]
  - Pleural effusion [Unknown]
  - Nerve injury [Unknown]
  - Musculoskeletal pain [Unknown]
  - Bone pain [Not Recovered/Not Resolved]

NARRATIVE: CASE EVENT DATE: 2012
